FAERS Safety Report 20448602 (Version 2)
Quarter: 2022Q1

REPORT INFORMATION
  Report Type: Spontaneous
  Country: CA (occurrence: CA)
  Receive Date: 20220209
  Receipt Date: 20220309
  Transmission Date: 20220423
  Serious: Yes (Hospitalization)
  Sender: FDA-Public Use
  Company Number: CA-VELOXIS PHARMACEUTICALS-2022VELCA-000050

PATIENT
  Age: 33 Year
  Sex: Male

DRUGS (3)
  1. TACROLIMUS [Suspect]
     Active Substance: TACROLIMUS
     Indication: Renal transplant
     Dosage: 5 MILLIGRAM, QD
     Route: 048
     Dates: start: 20220114, end: 20220118
  2. TACROLIMUS [Suspect]
     Active Substance: TACROLIMUS
     Dosage: INCREASED TO 7 MILLIGRAM, QD
     Route: 048
  3. TACROLIMUS [Suspect]
     Active Substance: TACROLIMUS
     Indication: Product used for unknown indication
     Dosage: UNK
     Route: 065

REACTIONS (6)
  - Culture positive [Unknown]
  - Urinary tract infection [Unknown]
  - Pyrexia [Unknown]
  - Infection [Unknown]
  - Tremor [Unknown]
  - Product availability issue [Unknown]
